FAERS Safety Report 13671061 (Version 1)
Quarter: 2017Q2

REPORT INFORMATION
  Report Type: Spontaneous
  Country: US (occurrence: US)
  Receive Date: 20170620
  Receipt Date: 20170620
  Transmission Date: 20170830
  Serious: No
  Sender: FDA-Public Use
  Company Number: US-ROCHE-1295949

PATIENT
  Sex: Female

DRUGS (6)
  1. AMBIEN [Concomitant]
     Active Substance: ZOLPIDEM TARTRATE
  2. TRAMADOL. [Concomitant]
     Active Substance: TRAMADOL
  3. XELODA [Suspect]
     Active Substance: CAPECITABINE
     Indication: PRODUCT USED FOR UNKNOWN INDICATION
     Dosage: 1000MG IN THE MORNING AND 500MG IN THE EVENING. 14 DAYS ON/7 DAYS OFF.
     Route: 065
  4. MOTRIN [Concomitant]
     Active Substance: IBUPROFEN
  5. TYKERB [Concomitant]
     Active Substance: LAPATINIB DITOSYLATE
  6. MEDROL [Suspect]
     Active Substance: METHYLPREDNISOLONE
     Indication: PRODUCT USED FOR UNKNOWN INDICATION
     Route: 065
     Dates: start: 20130925

REACTIONS (2)
  - Rash erythematous [Unknown]
  - Hypotension [Unknown]
